FAERS Safety Report 8591745-0 (Version None)
Quarter: 2012Q3

REPORT INFORMATION
  Report Type: 
  Country: None (occurrence: None)
  Receive Date: 20120814
  Receipt Date: 20120803
  Transmission Date: 20120928
  Serious: Yes (Death)
  Sender: FDA-Public Use
  Company Number: CO-MILLENNIUM PHARMACEUTICALS, INC.-2012-05495

PATIENT

DRUGS (2)
  1. DEXAMETHASONE [Concomitant]
  2. VELCADE [Suspect]
     Indication: MULTIPLE MYELOMA
     Dosage: 1.45 MG, UNK
     Route: 065
     Dates: start: 20111206

REACTIONS (1)
  - PULMONARY OEDEMA [None]
